FAERS Safety Report 24404394 (Version 1)
Quarter: 2024Q4

REPORT INFORMATION
  Report Type: Spontaneous
  Country: US (occurrence: None)
  Receive Date: 20241004
  Receipt Date: 20241004
  Transmission Date: 20250115
  Serious: No
  Sender: Public
  Company Number: None

PATIENT
  Age: 68 Year
  Sex: Male

DRUGS (2)
  1. BUPROPION HYDROCHLORIDE [Suspect]
     Active Substance: BUPROPION HYDROCHLORIDE
     Indication: Affective disorder
     Dosage: FREQUENCY : DAILY;?
     Route: 048
     Dates: start: 20240212
  2. CLONIDINE HYDROCHLORIDE [Suspect]
     Active Substance: CLONIDINE HYDROCHLORIDE
     Dosage: FREQUENCY : DAILY;?
     Route: 048
     Dates: start: 20240212

REACTIONS (6)
  - Dizziness [None]
  - Pruritus [None]
  - Pruritus [None]
  - Laryngeal discomfort [None]
  - Dizziness [None]
  - Therapeutic product effect decreased [None]

NARRATIVE: CASE EVENT DATE: 20240304
